FAERS Safety Report 22728981 (Version 3)
Quarter: 2023Q4

REPORT INFORMATION
  Report Type: Spontaneous
  Country: TW (occurrence: TW)
  Receive Date: 20230720
  Receipt Date: 20231102
  Transmission Date: 20240110
  Serious: Yes (Other)
  Sender: FDA-Public Use
  Company Number: TW-PFIZER INC-202300251775

PATIENT
  Age: 33 Year
  Sex: Female

DRUGS (4)
  1. PAXLOVID [Interacting]
     Active Substance: NIRMATRELVIR\RITONAVIR
     Indication: COVID-19
     Dosage: [PF-07321332 300 MG]/[RITONAVIR 100 MG]; 2X/DAY
     Route: 048
  2. TACROLIMUS [Interacting]
     Active Substance: TACROLIMUS
     Indication: Immunosuppressant drug therapy
     Dosage: 3 MG, DAILY (1 MG/CAP)
  3. PREDNISOLONE [Concomitant]
     Active Substance: PREDNISOLONE
     Dosage: 5 MG, ALTERNATE DAY
  4. MYCOPHENOLATE MOFETIL [Concomitant]
     Active Substance: MYCOPHENOLATE MOFETIL
     Dosage: 250 MG, 2X/DAY

REACTIONS (6)
  - Haematochezia [Recovered/Resolved]
  - Syncope [Recovered/Resolved]
  - Labelled drug-drug interaction medication error [Unknown]
  - Drug interaction [Unknown]
  - Drug level increased [Unknown]
  - Dizziness [Recovered/Resolved]
